FAERS Safety Report 9636276 (Version 2)
Quarter: 2013Q4

REPORT INFORMATION
  Report Type: Report from Study
  Country: US (occurrence: US)
  Receive Date: 20131021
  Receipt Date: 20131021
  Transmission Date: 20140711
  Serious: Yes (Hospitalization)
  Sender: FDA-Public Use
  Company Number: PHHO2010US11385

PATIENT
  Age: 70 Year
  Sex: Female

DRUGS (1)
  1. SOM230 [Suspect]
     Indication: PANCREATIC CARCINOMA
     Dosage: 900 UG, QD
     Route: 058
     Dates: start: 20100722

REACTIONS (3)
  - Hyperglycaemia [Recovered/Resolved]
  - Blood glucose fluctuation [Recovered/Resolved]
  - Anaemia [Recovered/Resolved]
